FAERS Safety Report 18549317 (Version 1)
Quarter: 2020Q4

REPORT INFORMATION
  Report Type: Spontaneous
  Country: US (occurrence: US)
  Receive Date: 20201126
  Receipt Date: 20201126
  Transmission Date: 20210114
  Serious: Yes (Other)
  Sender: FDA-Public Use
  Company Number: US-009507513-2011USA015267

PATIENT
  Age: 45 Year
  Sex: Male

DRUGS (1)
  1. KEYTRUDA [Suspect]
     Active Substance: PEMBROLIZUMAB
     Indication: SOFT TISSUE SARCOMA
     Dosage: 200MG EVERY 3 WEEKS

REACTIONS (2)
  - Immune-mediated pneumonitis [Unknown]
  - Product use in unapproved indication [Unknown]
